FAERS Safety Report 6335516-4 (Version None)
Quarter: 2009Q3

REPORT INFORMATION
  Report Type: 
  Country: None (occurrence: None)
  Receive Date: 20090831
  Receipt Date: 20090826
  Transmission Date: 20100115
  Serious: Yes (Other)
  Sender: FDA-Public Use
  Company Number: US-AMGEN-US359582

PATIENT
  Sex: Female

DRUGS (7)
  1. NPLATE [Suspect]
     Indication: IDIOPATHIC THROMBOCYTOPENIC PURPURA
     Route: 058
     Dates: start: 20090202, end: 20090720
  2. PREVACID [Concomitant]
     Route: 065
  3. PAXIL [Concomitant]
     Route: 065
  4. IRON [Concomitant]
     Route: 065
  5. DETROL [Concomitant]
     Route: 065
  6. TOPROL-XL [Concomitant]
     Route: 065
  7. TYLENOL (CAPLET) [Concomitant]
     Route: 065

REACTIONS (4)
  - ORAL HERPES [None]
  - THERAPEUTIC RESPONSE DECREASED [None]
  - THROMBOCYTOPENIA [None]
  - UPPER RESPIRATORY TRACT INFECTION [None]
